FAERS Safety Report 9322118 (Version 1)
Quarter: 2013Q2

REPORT INFORMATION
  Report Type: Spontaneous
  Country: US (occurrence: US)
  Receive Date: 20130531
  Receipt Date: 20130531
  Transmission Date: 20140414
  Serious: No
  Sender: FDA-Public Use
  Company Number: US-PFIZER INC-2013163107

PATIENT
  Age: 63 Year
  Sex: Female
  Weight: 80 kg

DRUGS (1)
  1. LIPITOR [Suspect]
     Dosage: UNK
     Route: 065

REACTIONS (2)
  - Pain in extremity [Recovered/Resolved]
  - Blood potassium decreased [Unknown]
